FAERS Safety Report 4616790-9 (Version None)
Quarter: 2005Q1

REPORT INFORMATION
  Report Type: 
  Country: None (occurrence: None)
  Receive Date: 20050321
  Receipt Date: 20050228
  Transmission Date: 20050727
  Serious: Yes (Other)
  Sender: FDA-Public Use
  Company Number: PHHO2005JP03670

PATIENT
  Age: 71 Year
  Sex: Male

DRUGS (9)
  1. VISUDYNE [Suspect]
     Indication: MACULAR DEGENERATION
     Dosage: 4.5 ML DAILY IV
     Route: 042
     Dates: start: 20041026, end: 20041026
  2. PIETENALE [Concomitant]
  3. DAONIL [Concomitant]
  4. ASPIRIN [Concomitant]
  5. NORVASC [Concomitant]
  6. MELBIN [Concomitant]
  7. GLUCOBAY [Concomitant]
  8. NICORANDIL [Concomitant]
  9. INHIBACE [Concomitant]

REACTIONS (2)
  - RETINAL HAEMORRHAGE [None]
  - VISUAL ACUITY REDUCED [None]
